FAERS Safety Report 4431757-1 (Version None)
Quarter: 2004Q3

REPORT INFORMATION
  Report Type: 
  Country: None (occurrence: None)
  Receive Date: 20040818
  Receipt Date: 20040803
  Transmission Date: 20050211
  Serious: Yes (Hospitalization)
  Sender: FDA-Public Use
  Company Number: D01200402967

PATIENT
  Age: 63 Year
  Sex: Male

DRUGS (3)
  1. FONDAPARINUX - SOLUTION [Suspect]
     Indication: ANGINA UNSTABLE
     Dosage: 2.5 MG QD, SUBCUTANEOUS
     Route: 058
     Dates: start: 20040309, end: 20040315
  2. ASPIRIN [Concomitant]
  3. CLOPIDOGREL [Concomitant]

REACTIONS (3)
  - ACUTE MYOCARDIAL INFARCTION [None]
  - CATHETER RELATED COMPLICATION [None]
  - CORONARY ARTERY THROMBOSIS [None]
